FAERS Safety Report 9747564 (Version 1)
Quarter: 2013Q4

REPORT INFORMATION
  Report Type: Report from Study
  Country: CA (occurrence: CA)
  Receive Date: 20131212
  Receipt Date: 20131212
  Transmission Date: 20140711
  Serious: Yes (Other)
  Sender: FDA-Public Use
  Company Number: CA-JNJFOC-20131204158

PATIENT
  Age: 63 Year
  Sex: Female
  Weight: 143.8 kg

DRUGS (8)
  1. REMICADE [Suspect]
     Indication: PSORIATIC ARTHROPATHY
     Route: 042
  2. REMICADE [Suspect]
     Indication: PSORIATIC ARTHROPATHY
     Route: 042
     Dates: start: 20131013
  3. SPIRIVA [Concomitant]
     Route: 065
  4. SYMBICORT [Concomitant]
     Route: 065
  5. BRICANYL [Concomitant]
     Route: 065
  6. AVALIDE [Concomitant]
     Route: 065
  7. CITALOPRAM [Concomitant]
     Route: 065
  8. PANTOLOC [Concomitant]
     Route: 065

REACTIONS (1)
  - Asthma [Recovered/Resolved]
